FAERS Safety Report 14135788 (Version 1)
Quarter: 2017Q4

REPORT INFORMATION
  Report Type: Spontaneous
  Country: US (occurrence: US)
  Receive Date: 20171027
  Receipt Date: 20171027
  Transmission Date: 20180321
  Serious: No
  Sender: FDA-Public Use
  Company Number: US-ASTRAZENECA-2017SF08750

PATIENT
  Sex: Female

DRUGS (2)
  1. DALIRESP [Suspect]
     Active Substance: ROFLUMILAST
     Indication: CHRONIC OBSTRUCTIVE PULMONARY DISEASE
     Dosage: 500.0UG UNKNOWN
     Route: 048
     Dates: start: 20171004
  2. OXYGEN. [Concomitant]
     Active Substance: OXYGEN

REACTIONS (4)
  - Nausea [Unknown]
  - Sleep disorder [Unknown]
  - Eating disorder [Unknown]
  - Headache [Unknown]
